FAERS Safety Report 12378360 (Version 1)
Quarter: 2016Q2

REPORT INFORMATION
  Report Type: Spontaneous
  Country: FR (occurrence: FR)
  Receive Date: 20160517
  Receipt Date: 20160517
  Transmission Date: 20160815
  Serious: Yes (Hospitalization)
  Sender: FDA-Public Use
  Company Number: FR-009507513-1605FRA006232

PATIENT
  Age: 76 Year
  Sex: Female

DRUGS (3)
  1. CEFEPIME [Suspect]
     Active Substance: CEFEPIME HYDROCHLORIDE
     Indication: INFECTION
     Dosage: 1 G, 2 DAYS
     Route: 042
     Dates: start: 20160314, end: 20160411
  2. LEVOFLOXACIN. [Suspect]
     Active Substance: LEVOFLOXACIN
     Indication: INFECTION
     Dosage: UNK
     Route: 042
     Dates: start: 20160314, end: 20160411
  3. CUBICIN [Suspect]
     Active Substance: DAPTOMYCIN
     Indication: INFECTION
     Dosage: 150 MG, Q8H
     Route: 042
     Dates: start: 20160314, end: 20160411

REACTIONS (1)
  - Toxic skin eruption [Recovered/Resolved]
